FAERS Safety Report 8906365 (Version 1)
Quarter: 2012Q4

REPORT INFORMATION
  Report Type: Spontaneous
  Country: US (occurrence: None)
  Receive Date: 20121109
  Receipt Date: 20121109
  Transmission Date: 20130627
  Serious: No
  Sender: FDA-Public Use
  Company Number: None

PATIENT
  Sex: Female
  Weight: 81.19 kg

DRUGS (1)
  1. BENICAR [Suspect]
     Indication: BLOOD PRESSURE HIGH
     Dosage: Dr. Franzi gave me samples
     Route: 048
     Dates: start: 2004

REACTIONS (7)
  - Product colour issue [None]
  - Arthralgia [None]
  - Back pain [None]
  - Pain in extremity [None]
  - Connective tissue disorder [None]
  - Laboratory test abnormal [None]
  - Myalgia [None]
